FAERS Safety Report 10767593 (Version 1)
Quarter: 2015Q1

REPORT INFORMATION
  Report Type: Spontaneous
  Country: US (occurrence: US)
  Receive Date: 20150205
  Receipt Date: 20150205
  Transmission Date: 20150721
  Serious: Yes (Hospitalization, Disabling, Other)
  Sender: FDA-Public Use
  Company Number: US-JAZZ-JPI-P-028980

PATIENT
  Age: 46 Year
  Sex: Male

DRUGS (4)
  1. XYREM [Suspect]
     Active Substance: SODIUM OXYBATE
     Dosage: 3 G FIRST DOSE
     Route: 048
     Dates: start: 20120926
  2. XYREM [Suspect]
     Active Substance: SODIUM OXYBATE
     Dosage: 4 G SECOND DOSE
     Route: 048
     Dates: start: 20120926
  3. XYREM [Suspect]
     Active Substance: SODIUM OXYBATE
     Dosage: SINGLE (UNSPECIFED DOSE CHANGE)
     Route: 048
  4. XYREM [Suspect]
     Active Substance: SODIUM OXYBATE
     Indication: NARCOLEPSY
     Dosage: 2.25 G, BID
     Route: 048
     Dates: start: 20060825

REACTIONS (2)
  - Spinal cord abscess [Recovered/Resolved]
  - Spinal column injury [Unknown]

NARRATIVE: CASE EVENT DATE: 20121204
